FAERS Safety Report 6162710-8 (Version None)
Quarter: 2009Q2

REPORT INFORMATION
  Report Type: 
  Country: None (occurrence: None)
  Receive Date: 20090421
  Receipt Date: 20080213
  Transmission Date: 20091009
  Serious: No
  Sender: FDA-Public Use
  Company Number: US-ASTRAZENECA-2008UW03074

PATIENT
  Sex: Female

DRUGS (1)
  1. TOPROL-XL [Suspect]
     Route: 048
     Dates: start: 20041001

REACTIONS (6)
  - ASTHMA [None]
  - COUGH [None]
  - DEPRESSION [None]
  - DYSPNOEA [None]
  - SOMNOLENCE [None]
  - VARICOSE VEIN [None]
